FAERS Safety Report 6128028-4 (Version None)
Quarter: 2009Q1

REPORT INFORMATION
  Report Type: 
  Country: None (occurrence: None)
  Receive Date: 20090323
  Receipt Date: 20090318
  Transmission Date: 20090719
  Serious: Yes (Life-Threatening)
  Sender: FDA-Public Use
  Company Number: US-MERCK-0903USA03609

PATIENT
  Age: 70 Year
  Sex: Male

DRUGS (2)
  1. INVANZ [Suspect]
     Indication: OSTEOMYELITIS
     Route: 065
  2. VANCOMYCIN [Suspect]
     Route: 065

REACTIONS (2)
  - CARDIAC FAILURE [None]
  - TUBULOINTERSTITIAL NEPHRITIS [None]
